FAERS Safety Report 22173757 (Version 1)
Quarter: 2023Q2

REPORT INFORMATION
  Report Type: Spontaneous
  Country: EE (occurrence: EE)
  Receive Date: 20230404
  Receipt Date: 20230404
  Transmission Date: 20230722
  Serious: Yes (Hospitalization)
  Sender: FDA-Public Use
  Company Number: EE-BAYER-2021A223793

PATIENT
  Age: 61 Year
  Sex: Female

DRUGS (2)
  1. XARELTO [Suspect]
     Active Substance: RIVAROXABAN
     Indication: Atrial fibrillation
     Dosage: 20 MG, QD
     Route: 048
     Dates: start: 201901
  2. METOPROLOL [Concomitant]
     Active Substance: METOPROLOL
     Dosage: 50 MG, QD

REACTIONS (4)
  - Ischaemic stroke [Unknown]
  - Cerebral artery thrombosis [Unknown]
  - Hemiplegia [Unknown]
  - Aphasia [Unknown]

NARRATIVE: CASE EVENT DATE: 20210925
